FAERS Safety Report 6671975-5 (Version None)
Quarter: 2010Q2

REPORT INFORMATION
  Report Type: 
  Country: None (occurrence: None)
  Receive Date: 20100407
  Receipt Date: 20100331
  Transmission Date: 20101027
  Serious: Yes (Hospitalization)
  Sender: FDA-Public Use
  Company Number: US-GILEAD-2010-0028258

PATIENT
  Sex: Female

DRUGS (15)
  1. LETAIRIS [Suspect]
     Indication: PULMONARY ARTERIAL HYPERTENSION
     Route: 048
     Dates: start: 20080922
  2. COUMADIN [Concomitant]
  3. PLAVIX [Concomitant]
  4. DIPYRIDAMOLE [Concomitant]
  5. LASIX [Concomitant]
  6. COZAAR [Concomitant]
  7. METOPROLOL TARTRATE [Concomitant]
  8. NORVASC [Concomitant]
  9. ALBUTEROL [Concomitant]
  10. MYCELEX [Concomitant]
  11. LORAZEPAM [Concomitant]
  12. KLONOPIN [Concomitant]
  13. OXYBUTYNIN CHLORIDE [Concomitant]
  14. CRESTOR [Concomitant]
  15. POTASSIUM CHLORIDE [Concomitant]

REACTIONS (1)
  - PNEUMONIA [None]
